FAERS Safety Report 23854295 (Version 2)
Quarter: 2024Q3

REPORT INFORMATION
  Report Type: Spontaneous
  Country: US (occurrence: US)
  Receive Date: 20240514
  Receipt Date: 20240821
  Transmission Date: 20241017
  Serious: Yes (Hospitalization, Other)
  Sender: JOHNSON AND JOHNSON
  Company Number: US-JNJFOC-20240537565

PATIENT
  Sex: Female
  Weight: 71 kg

DRUGS (5)
  1. TECVAYLI [Suspect]
     Active Substance: TECLISTAMAB-CQYV
     Indication: Plasma cell myeloma
     Dosage: 9TH LINE
     Route: 058
     Dates: start: 202202
  2. TECVAYLI [Suspect]
     Active Substance: TECLISTAMAB-CQYV
     Route: 058
     Dates: start: 202211
  3. TECVAYLI [Suspect]
     Active Substance: TECLISTAMAB-CQYV
     Dosage: TECLISTAMAB RESUMED WITH CLINCAL RESPONSE
     Route: 058
     Dates: start: 202304, end: 20231027
  4. LENALIDOMIDE [Suspect]
     Active Substance: LENALIDOMIDE
     Indication: Plasma cell myeloma
     Dosage: 8TH LINE
     Route: 065
     Dates: start: 202202
  5. LENALIDOMIDE [Suspect]
     Active Substance: LENALIDOMIDE
     Dosage: AFTER SEVERAL DOSE REDUCTIONS LENALIDOMIDE DISCONTINUED
     Route: 065
     Dates: end: 202208

REACTIONS (5)
  - Cerebral haemorrhage [Unknown]
  - Pneumonia [Unknown]
  - Sepsis [Unknown]
  - Neutropenia [Not Recovered/Not Resolved]
  - Plasma cell myeloma [Unknown]

NARRATIVE: CASE EVENT DATE: 20221201
